FAERS Safety Report 4368356-6 (Version None)
Quarter: 2004Q2

REPORT INFORMATION
  Report Type: 
  Country: None (occurrence: None)
  Receive Date: 20040525
  Receipt Date: 20040510
  Transmission Date: 20050107
  Serious: Yes (Hospitalization)
  Sender: FDA-Public Use
  Company Number: T04-CAN-01453-01

PATIENT
  Age: 64 Year
  Sex: Female

DRUGS (11)
  1. CELEXA [Suspect]
     Indication: DEPRESSION
     Dates: start: 20031119
  2. CYTOMEL [Concomitant]
  3. PLAVIX [Concomitant]
  4. ACETYLSALICYLIC ACID SRT [Concomitant]
  5. MONOCOR( BISOPROLOL FUMARATE) [Concomitant]
  6. LIPITOR [Concomitant]
  7. ALTACE [Concomitant]
  8. IMOVANE (ZOPICLONE) [Concomitant]
  9. STARNOC (ZALEPLON) [Concomitant]
  10. NEXIUM [Concomitant]
  11. MULTI-VITAMINS [Concomitant]

REACTIONS (2)
  - PAPILLARY THYROID CANCER [None]
  - THYROID ADENOMA [None]
